FAERS Safety Report 5084119-0 (Version None)
Quarter: 2006Q3

REPORT INFORMATION
  Report Type: 
  Country: None (occurrence: None)
  Receive Date: 20060816
  Receipt Date: 20060808
  Transmission Date: 20061208
  Serious: Yes (Hospitalization)
  Sender: FDA-Public Use
  Company Number: 2006BI005411

PATIENT
  Age: 36 Year
  Sex: Male

DRUGS (5)
  1. AVONEX [Suspect]
     Indication: MULTIPLE SCLEROSIS
     Dosage: 30 UG; UNKNOWN; IM
     Route: 030
     Dates: start: 20030101, end: 20060501
  2. IMURAN [Concomitant]
  3. ZANAFLEX [Concomitant]
  4. BACLOFEN [Concomitant]
  5. DULCOLAX [Concomitant]

REACTIONS (2)
  - DIPLEGIA [None]
  - VIRAL INFECTION [None]
